FAERS Safety Report 13468688 (Version 1)
Quarter: 2017Q2

REPORT INFORMATION
  Report Type: Spontaneous
  Country: IR (occurrence: IR)
  Receive Date: 20170421
  Receipt Date: 20170421
  Transmission Date: 20170830
  Serious: Yes (Death, Other)
  Sender: FDA-Public Use
  Company Number: IR-LANNETT COMPANY, INC.-IR-2017LAN000711

PATIENT
  Age: 9 Year
  Sex: Female

DRUGS (2)
  1. PAROXETINE HYDROCHLORIDE. [Suspect]
     Active Substance: PAROXETINE HYDROCHLORIDE
     Indication: MAJOR DEPRESSION
     Dosage: 20 MG, QD
  2. PAROXETINE HYDROCHLORIDE. [Suspect]
     Active Substance: PAROXETINE HYDROCHLORIDE
     Dosage: 10 MG, QD

REACTIONS (7)
  - Psychomotor hyperactivity [Unknown]
  - Insomnia [Unknown]
  - Suicidal ideation [Unknown]
  - Injury [Fatal]
  - Completed suicide [Fatal]
  - Increased appetite [Unknown]
  - Anxiety [Unknown]
